FAERS Safety Report 6499870-5 (Version None)
Quarter: 2009Q4

REPORT INFORMATION
  Report Type: 
  Country: None (occurrence: None)
  Receive Date: 20091214
  Receipt Date: 20091214
  Transmission Date: 20100525
  Serious: No
  Sender: FDA-Public Use
  Company Number: None

PATIENT
  Age: 43 Year
  Sex: Male
  Weight: 129.2752 kg

DRUGS (2)
  1. TOPAMAX [Suspect]
     Indication: MYALGIA
     Dosage: 25 MG 3/3 D, 6/3 DY, 9/ PO
     Route: 048
     Dates: start: 20091023, end: 20091031
  2. TOPAMAX [Suspect]
     Indication: NEUROPATHY PERIPHERAL
     Dosage: 25 MG 3/3 D, 6/3 DY, 9/ PO
     Route: 048
     Dates: start: 20091023, end: 20091031

REACTIONS (5)
  - ACTIVITIES OF DAILY LIVING IMPAIRED [None]
  - ANGLE CLOSURE GLAUCOMA [None]
  - IMPAIRED DRIVING ABILITY [None]
  - IMPAIRED WORK ABILITY [None]
  - VISION BLURRED [None]
